FAERS Safety Report 8012585-7 (Version None)
Quarter: 2011Q4

REPORT INFORMATION
  Report Type: 
  Country: None (occurrence: None)
  Receive Date: 20111223
  Receipt Date: 20111223
  Transmission Date: 20120403
  Serious: Yes (Disabling)
  Sender: FDA-Public Use
  Company Number: None

PATIENT
  Age: 73 Year
  Sex: Female
  Weight: 65.7716 kg

DRUGS (1)
  1. SIMVASTATIN [Suspect]
     Indication: BLOOD CHOLESTEROL
     Dosage: 20MG 1 AT NITE ORAL
     Route: 048
     Dates: start: 20101117, end: 20110620

REACTIONS (6)
  - GAIT DISTURBANCE [None]
  - FALL [None]
  - MYALGIA [None]
  - LOSS OF CONTROL OF LEGS [None]
  - SKIN DISCOLOURATION [None]
  - MUSCULAR WEAKNESS [None]
